FAERS Safety Report 14105719 (Version 1)
Quarter: 2017Q4

REPORT INFORMATION
  Report Type: Spontaneous
  Country: US (occurrence: US)
  Receive Date: 20171018
  Receipt Date: 20171018
  Transmission Date: 20180321
  Serious: No
  Sender: FDA-Public Use
  Company Number: US-AMGEN-USASP2016136613

PATIENT
  Sex: Male

DRUGS (1)
  1. PROLIA [Suspect]
     Active Substance: DENOSUMAB
     Indication: PRODUCT USED FOR UNKNOWN INDICATION
     Dosage: UNK
     Route: 065
     Dates: start: 201603

REACTIONS (6)
  - Feeling hot [Unknown]
  - Testicular pain [Unknown]
  - Erythema [Unknown]
  - Blood testosterone decreased [Recovered/Resolved]
  - Hyperhidrosis [Unknown]
  - Hot flush [Recovering/Resolving]
